FAERS Safety Report 14343277 (Version 1)
Quarter: 2018Q1

REPORT INFORMATION
  Report Type: Spontaneous
  Country: CH (occurrence: CH)
  Receive Date: 20180102
  Receipt Date: 20180102
  Transmission Date: 20180509
  Serious: Yes (Death, Life-Threatening, Other)
  Sender: FDA-Public Use
  Company Number: CH-JNJFOC-20171233996

PATIENT
  Age: 78 Year
  Sex: Male

DRUGS (3)
  1. CLOPIDOGREL [Suspect]
     Active Substance: CLOPIDOGREL BISULFATE
     Indication: PRODUCT USED FOR UNKNOWN INDICATION
     Route: 065
  2. ACETYLSALICYLIC ACID [Suspect]
     Active Substance: ASPIRIN
     Indication: PRODUCT USED FOR UNKNOWN INDICATION
     Route: 065
  3. RIVAROXABAN [Suspect]
     Active Substance: RIVAROXABAN
     Indication: ATRIAL FIBRILLATION
     Route: 048

REACTIONS (9)
  - Haematuria [Not Recovered/Not Resolved]
  - Cerebral haemorrhage [Fatal]
  - Pneumonia [Fatal]
  - Drug administration error [Unknown]
  - Gastrointestinal haemorrhage [Not Recovered/Not Resolved]
  - Syncope [Unknown]
  - Subdural haematoma [Fatal]
  - Labelled drug-drug interaction medication error [Unknown]
  - Subarachnoid haematoma [Fatal]
